FAERS Safety Report 8455140-7 (Version None)
Quarter: 2012Q2

REPORT INFORMATION
  Report Type: 
  Country: None (occurrence: None)
  Receive Date: 20120615
  Receipt Date: 20120615
  Transmission Date: 20120825
  Serious: Yes (Other)
  Sender: FDA-Public Use
  Company Number: None

PATIENT
  Age: 34 Year
  Sex: Female
  Weight: 110.6777 kg

DRUGS (2)
  1. DOXYCYCLINE [Suspect]
     Indication: TOOTHACHE
     Dosage: 1, 2 TIMES A DAY, PO
     Route: 048
     Dates: start: 20120414, end: 20120611
  2. DOXYCYCLINE [Suspect]
     Indication: FURUNCLE
     Dosage: 1, 2 TIMES A DAY, PO
     Route: 048
     Dates: start: 20120414, end: 20120611

REACTIONS (14)
  - PALPITATIONS [None]
  - SLUGGISHNESS [None]
  - SWOLLEN TONGUE [None]
  - THROAT TIGHTNESS [None]
  - MALAISE [None]
  - EATING DISORDER [None]
  - TREMOR [None]
  - HYPOAESTHESIA [None]
  - ANXIETY [None]
  - STRESS [None]
  - HEADACHE [None]
  - VISION BLURRED [None]
  - PHARYNGEAL OEDEMA [None]
  - DRUG INEFFECTIVE [None]
